FAERS Safety Report 11151373 (Version 1)
Quarter: 2015Q2

REPORT INFORMATION
  Report Type: Spontaneous
  Country: US (occurrence: US)
  Receive Date: 20150601
  Receipt Date: 20150601
  Transmission Date: 20150821
  Serious: Yes (Hospitalization)
  Sender: FDA-Public Use
  Company Number: US-OTSUKA-2015_000031

PATIENT
  Age: 85 Year
  Sex: Female

DRUGS (1)
  1. ARIPIPRAZOLE. [Suspect]
     Active Substance: ARIPIPRAZOLE
     Indication: ABNORMAL BEHAVIOUR
     Dosage: 5 MG, BID
     Route: 048

REACTIONS (4)
  - Speech disorder [Unknown]
  - Loss of consciousness [Unknown]
  - Aggression [Unknown]
  - Off label use [Unknown]

NARRATIVE: CASE EVENT DATE: 20150408
